FAERS Safety Report 4902406-0 (Version None)
Quarter: 2006Q1

REPORT INFORMATION
  Report Type: 
  Country: None (occurrence: None)
  Receive Date: 20060201
  Receipt Date: 20060201
  Transmission Date: 20060701
  Serious: Yes (Death, Hospitalization, Other)
  Sender: FDA-Public Use
  Company Number: None

PATIENT
  Sex: Female
  Weight: 51.36 kg

DRUGS (2)
  1. CISPLATIN [Suspect]
     Indication: SQUAMOUS CELL CARCINOMA OF THE CERVIX
     Dosage: 78.5 MG
     Route: 042
     Dates: start: 20060104, end: 20060104
  2. TOPOTECAN [Suspect]
     Dosage: 2.82 MG
     Route: 042
     Dates: start: 20060104, end: 20060106

REACTIONS (3)
  - DILATATION INTRAHEPATIC DUCT ACQUIRED [None]
  - PANCREATIC DUCT DILATATION [None]
  - RECTAL HAEMORRHAGE [None]
